FAERS Safety Report 23182320 (Version 2)
Quarter: 2023Q4

REPORT INFORMATION
  Report Type: Spontaneous
  Country: US (occurrence: None)
  Receive Date: 20231114
  Receipt Date: 20231124
  Transmission Date: 20240109
  Serious: Yes (Other)
  Sender: FDA-Public Use
  Company Number: 2023A252475

PATIENT
  Age: 27123 Day
  Sex: Male

DRUGS (1)
  1. BYDUREON BCISE [Suspect]
     Active Substance: EXENATIDE

REACTIONS (5)
  - Cataract [Unknown]
  - Memory impairment [Unknown]
  - Abnormal dreams [Unknown]
  - Visual impairment [Unknown]
  - Device leakage [Unknown]

NARRATIVE: CASE EVENT DATE: 20231106
